FAERS Safety Report 12109856 (Version 1)
Quarter: 2016Q1

REPORT INFORMATION
  Report Type: Spontaneous
  Country: US (occurrence: US)
  Receive Date: 20160224
  Receipt Date: 20160224
  Transmission Date: 20160526
  Serious: No
  Sender: FDA-Public Use
  Company Number: US-PFIZER INC-2016105786

PATIENT
  Age: 78 Year
  Sex: Female
  Weight: 49 kg

DRUGS (1)
  1. EXEMESTANE. [Suspect]
     Active Substance: EXEMESTANE
     Indication: METASTATIC NEOPLASM
     Dosage: 25 MG, DAILY
     Route: 048
     Dates: start: 20140812

REACTIONS (6)
  - Musculoskeletal pain [Unknown]
  - Disease progression [Unknown]
  - Metastatic neoplasm [Unknown]
  - Feeling abnormal [Unknown]
  - Groin pain [Unknown]
  - Product use issue [Unknown]
